FAERS Safety Report 25068154 (Version 1)
Quarter: 2025Q1

REPORT INFORMATION
  Report Type: Spontaneous
  Country: US (occurrence: None)
  Receive Date: 20250311
  Receipt Date: 20250311
  Transmission Date: 20250409
  Serious: No
  Sender: FDA-CTU
  Company Number: None

PATIENT
  Sex: Female
  Weight: 67.5 kg

DRUGS (5)
  1. SERTRALINE HYDROCHLORIDE [Suspect]
     Active Substance: SERTRALINE HYDROCHLORIDE
     Indication: Anxiety
     Dates: start: 20250210, end: 20250214
  2. PROLIA [Concomitant]
     Active Substance: DENOSUMAB
  3. UBRELVY [Concomitant]
     Active Substance: UBROGEPANT
  4. Nexium 40 mg. [Concomitant]
  5. ACYCLOVIR [Concomitant]
     Active Substance: ACYCLOVIR

REACTIONS (3)
  - Muscle spasms [None]
  - Vitreous floaters [None]
  - Therapy cessation [None]
